FAERS Safety Report 8405483-8 (Version None)
Quarter: 2012Q2

REPORT INFORMATION
  Report Type: 
  Country: None (occurrence: None)
  Receive Date: 20120604
  Receipt Date: 20120524
  Transmission Date: 20120825
  Serious: Yes (Hospitalization, Other)
  Sender: FDA-Public Use
  Company Number: FR-BIOGENIDEC-2012BI018493

PATIENT
  Age: 56 Year
  Sex: Female

DRUGS (8)
  1. TANGANIL [Concomitant]
     Indication: MENIERE'S DISEASE
     Route: 048
  2. LYRICA [Concomitant]
     Indication: PARAESTHESIA
     Route: 048
  3. ALFUZOSIN HCL [Concomitant]
     Route: 048
  4. SOLU-MEDROL [Concomitant]
     Indication: MULTIPLE SCLEROSIS
     Route: 042
     Dates: start: 20070501, end: 20120404
  5. OMEPRAZOLE [Concomitant]
     Route: 048
  6. BETASERC [Concomitant]
     Route: 048
  7. PROGESTERONE [Concomitant]
  8. AVONEX [Suspect]
     Indication: MULTIPLE SCLEROSIS
     Route: 030
     Dates: start: 20051101, end: 20060101

REACTIONS (1)
  - ACUTE MYELOID LEUKAEMIA [None]
